FAERS Safety Report 18632668 (Version 1)
Quarter: 2020Q4

REPORT INFORMATION
  Report Type: Spontaneous
  Country: GB (occurrence: GB)
  Receive Date: 20201218
  Receipt Date: 20201218
  Transmission Date: 20210114
  Serious: Yes (Life-Threatening, Hospitalization)
  Sender: FDA-Public Use
  Company Number: GB-ACCORD-210922

PATIENT
  Age: 36 Year
  Sex: Male

DRUGS (3)
  1. AMISULPRIDE [Concomitant]
     Active Substance: AMISULPRIDE
  2. CLOZAPINE. [Suspect]
     Active Substance: CLOZAPINE
     Indication: SCHIZOPHRENIA
     Route: 048
     Dates: start: 20070520, end: 20200324
  3. VALPROIC ACID. [Concomitant]
     Active Substance: VALPROIC ACID

REACTIONS (6)
  - Confusional state [Unknown]
  - Withdrawal syndrome [Unknown]
  - Psychotic disorder [Recovered/Resolved with Sequelae]
  - Aggression [Unknown]
  - Drug monitoring procedure not performed [Unknown]
  - Mental disorder [Unknown]

NARRATIVE: CASE EVENT DATE: 20200403
